FAERS Safety Report 5136586-1 (Version None)
Quarter: 2006Q4

REPORT INFORMATION
  Report Type: 
  Country: None (occurrence: None)
  Receive Date: 20061023
  Receipt Date: 20061010
  Transmission Date: 20070319
  Serious: Yes (Other)
  Sender: FDA-Public Use
  Company Number: 2006126506

PATIENT
  Age: 42 Year
  Sex: Female
  Weight: 58.9676 kg

DRUGS (2)
  1. DOSTINEX [Suspect]
     Indication: PITUITARY TUMOUR BENIGN
  2. CABERGOLINE [Suspect]
     Indication: PITUITARY TUMOUR BENIGN
     Dosage: 0.5 MG (0.5 MG,1  IN 1 WK)
     Dates: start: 20060904, end: 20060918

REACTIONS (5)
  - GASTROINTESTINAL DISORDER [None]
  - HEADACHE [None]
  - MALAISE [None]
  - STOMACH DISCOMFORT [None]
  - VERTIGO [None]
